FAERS Safety Report 7393878-3 (Version None)
Quarter: 2011Q2

REPORT INFORMATION
  Report Type: 
  Country: None (occurrence: None)
  Receive Date: 20110405
  Receipt Date: 20110322
  Transmission Date: 20111010
  Serious: Yes (Hospitalization)
  Sender: FDA-Public Use
  Company Number: US-JNJFOC-20110304616

PATIENT

DRUGS (2)
  1. REMICADE [Suspect]
     Indication: CROHN'S DISEASE
     Dosage: TOTAL 14 DOSES
     Route: 042
  2. REMICADE [Suspect]
     Route: 042

REACTIONS (1)
  - CROHN'S DISEASE [None]
